FAERS Safety Report 5936058-8 (Version None)
Quarter: 2008Q4

REPORT INFORMATION
  Report Type: 
  Country: None (occurrence: None)
  Receive Date: 20081030
  Receipt Date: 20081024
  Transmission Date: 20090506
  Serious: Yes (Hospitalization, Other)
  Sender: FDA-Public Use
  Company Number: CH-WYE-G02425808

PATIENT
  Age: 49 Year
  Sex: Female

DRUGS (4)
  1. EFFEXOR [Suspect]
     Route: 048
     Dates: start: 20080101, end: 20080101
  2. EFFEXOR [Suspect]
     Route: 048
     Dates: start: 20080101
  3. METHOTREXATE [Concomitant]
     Indication: SJOGREN'S SYNDROME
  4. PREDNISONE TAB [Concomitant]
     Indication: SJOGREN'S SYNDROME

REACTIONS (7)
  - ATAXIA [None]
  - EXTRAPYRAMIDAL DISORDER [None]
  - FALL [None]
  - GAIT DISTURBANCE [None]
  - NEUROLEPTIC MALIGNANT SYNDROME [None]
  - RIB FRACTURE [None]
  - SEROTONIN SYNDROME [None]
